FAERS Safety Report 17578017 (Version 2)
Quarter: 2020Q1

REPORT INFORMATION
  Report Type: Spontaneous
  Country: US (occurrence: US)
  Receive Date: 20200324
  Receipt Date: 20200326
  Transmission Date: 20200409
  Serious: No
  Sender: FDA-Public Use
  Company Number: US-TEVA-2020-US-1211146

PATIENT
  Age: 68 Year
  Sex: Male
  Weight: 79.82 kg

DRUGS (7)
  1. TYLENOL PM [Suspect]
     Active Substance: ACETAMINOPHEN\DIPHENHYDRAMINE
     Indication: INSOMNIA
     Dosage: 1/2 TABLET, SINGLE HS
     Route: 048
     Dates: start: 202003, end: 202003
  2. VITAMINS NOS [Concomitant]
     Active Substance: VITAMINS
  3. SINGULAIR [Concomitant]
     Active Substance: MONTELUKAST SODIUM
  4. ATORVASTATIN [Concomitant]
     Active Substance: ATORVASTATIN
  5. BREO ELLIPTA [Concomitant]
     Active Substance: FLUTICASONE FUROATE\VILANTEROL TRIFENATATE
  6. BABY ASPIRIN [Concomitant]
     Active Substance: ASPIRIN
  7. FEXOFENADINE [Suspect]
     Active Substance: FEXOFENADINE HYDROCHLORIDE
     Indication: SINUSITIS
     Route: 048
     Dates: start: 202003, end: 202003

REACTIONS (4)
  - Insomnia [Recovered/Resolved]
  - Restlessness [Recovered/Resolved]
  - Product administered to patient of inappropriate age [Unknown]
  - Drug effective for unapproved indication [Unknown]

NARRATIVE: CASE EVENT DATE: 202003
